FAERS Safety Report 16336453 (Version 2)
Quarter: 2020Q4

REPORT INFORMATION
  Report Type: Spontaneous
  Country: US (occurrence: US)
  Receive Date: 20190521
  Receipt Date: 20201223
  Transmission Date: 20210113
  Serious: Yes (Other)
  Sender: FDA-Public Use
  Company Number: US-TAKEDA-2019TUS030629

PATIENT

DRUGS (17)
  1. PREVACID [Suspect]
     Active Substance: LANSOPRAZOLE
     Indication: GASTRINOMA
     Dosage: 20 MILLIGRAM, BID
     Route: 048
     Dates: start: 2005, end: 2010
  2. ISOSORBIDE. [Concomitant]
     Active Substance: ISOSORBIDE
     Indication: CHEST PAIN
     Dosage: UNK
     Dates: start: 2004
  3. PRILOSEC [Suspect]
     Active Substance: OMEPRAZOLE MAGNESIUM
     Indication: GASTRINOMA
     Dosage: 20 MILLIGRAM, BID
     Route: 048
     Dates: start: 1989, end: 2005
  4. OMEPRAZOLE. [Suspect]
     Active Substance: OMEPRAZOLE
     Indication: GASTRINOMA
     Dosage: 20 MILLIGRAM, BID
     Route: 048
     Dates: start: 2005, end: 2008
  5. OMEPRAZOLE. [Suspect]
     Active Substance: OMEPRAZOLE
     Dosage: 20 MILLIGRAM, BID
     Route: 048
  6. METOPROLOL. [Concomitant]
     Active Substance: METOPROLOL
     Indication: HYPERTENSION
  7. TAMSULOSIN [Concomitant]
     Active Substance: TAMSULOSIN
     Indication: HYPOTONIA
     Dosage: UNK
     Dates: start: 2004
  8. NEXIUM [Suspect]
     Active Substance: ESOMEPRAZOLE MAGNESIUM
     Indication: GASTRINOMA
     Dosage: 20 MILLIGRAM, BID
     Route: 048
     Dates: start: 2001, end: 2008
  9. CLOPIDOGREL [Concomitant]
     Active Substance: CLOPIDOGREL BISULFATE
     Indication: CARDIAC DISORDER
     Dosage: UNK
     Dates: start: 2004
  10. MAALOX [ALUMINIUM HYDROXIDE;MAGNESIUM HYDROXIDE;SIMETICONE] [Concomitant]
     Dosage: UNK
     Dates: start: 1985, end: 1989
  11. ESOMEPRAZOLE. [Suspect]
     Active Substance: ESOMEPRAZOLE MAGNESIUM
     Indication: GASTRINOMA
     Dosage: 20 MILLIGRAM, BID
     Route: 048
     Dates: start: 2017, end: 2019
  12. LOSARTAN. [Concomitant]
     Active Substance: LOSARTAN
     Indication: HYPERTENSION
     Dosage: UNK
     Dates: start: 2004
  13. TORSEMIDE. [Concomitant]
     Active Substance: TORSEMIDE
     Dosage: UNK
     Dates: start: 2004
  14. LANSOPRAZOLE. [Suspect]
     Active Substance: LANSOPRAZOLE
     Indication: GASTRINOMA
     Dosage: 30 MILLIGRAM, BID
     Route: 048
     Dates: start: 2010
  15. METOPROLOL. [Concomitant]
     Active Substance: METOPROLOL
     Indication: CHEST PAIN
     Dosage: UNK
     Dates: start: 2004
  16. PREVACID 24 HR [Suspect]
     Active Substance: LANSOPRAZOLE
     Indication: GASTRINOMA
     Dosage: 20 MILLIGRAM, BID
     Route: 048
     Dates: start: 2010, end: 2015
  17. NEXIUM 24HR [Suspect]
     Active Substance: ESOMEPRAZOLE MAGNESIUM
     Indication: GASTRINOMA
     Dosage: 20 MILLIGRAM, BID
     Route: 048
     Dates: start: 2014, end: 2015

REACTIONS (1)
  - Chronic kidney disease [Not Recovered/Not Resolved]

NARRATIVE: CASE EVENT DATE: 201201
